FAERS Safety Report 9985872 (Version 1)
Quarter: 2014Q1

REPORT INFORMATION
  Report Type: Spontaneous
  Country: FR (occurrence: FR)
  Receive Date: 20140307
  Receipt Date: 20140307
  Transmission Date: 20141002
  Serious: Yes (Disabling)
  Sender: FDA-Public Use
  Company Number: FR-ASTRAZENECA-2014SE15776

PATIENT
  Sex: Male

DRUGS (1)
  1. SYMBICORT [Suspect]
     Indication: RESPIRATORY FAILURE
     Dosage: 320/9 UG PER DOSE, THREE TIMES PER DAY
     Route: 055
     Dates: start: 2005

REACTIONS (2)
  - Cachexia [Not Recovered/Not Resolved]
  - Drug ineffective [Not Recovered/Not Resolved]
